FAERS Safety Report 23041677 (Version 2)
Quarter: 2025Q1

REPORT INFORMATION
  Report Type: Report from Study
  Country: US (occurrence: US)
  Receive Date: 20231007
  Receipt Date: 20250102
  Transmission Date: 20250409
  Serious: Yes (Other)
  Sender: TAKEDA
  Company Number: US-TAKEDA-2018TUS032436

PATIENT
  Age: 48 Year
  Sex: Female

DRUGS (10)
  1. PONATINIB [Suspect]
     Active Substance: PONATINIB
     Indication: Chronic myeloid leukaemia
     Dosage: 15 MILLIGRAM, QD
     Dates: start: 20181101
  2. PONATINIB [Suspect]
     Active Substance: PONATINIB
     Dosage: 30 MILLIGRAM, QD
     Dates: start: 20190416
  3. PONATINIB [Suspect]
     Active Substance: PONATINIB
     Dosage: 45 MILLIGRAM, QD
  4. PONATINIB [Suspect]
     Active Substance: PONATINIB
     Dosage: 45 MILLIGRAM, QD
  5. VITAMIN B12 [Concomitant]
     Active Substance: CYANOCOBALAMIN
  6. FOLIC ACID [Concomitant]
     Active Substance: FOLIC ACID
  7. PEPCID [Concomitant]
     Active Substance: FAMOTIDINE
  8. VITAMIN D [Concomitant]
     Active Substance: VITAMIN D NOS
  9. MAGNESIUM [Concomitant]
     Active Substance: MAGNESIUM
  10. CARVEDILOL [Concomitant]
     Active Substance: CARVEDILOL

REACTIONS (7)
  - Philadelphia chromosome positive [Unknown]
  - Back pain [Unknown]
  - Neck pain [Unknown]
  - Headache [Recovering/Resolving]
  - Chest pain [Unknown]
  - Stress [Unknown]
  - Product dose omission issue [Unknown]

NARRATIVE: CASE EVENT DATE: 20190410
